FAERS Safety Report 6730446-8 (Version None)
Quarter: 2010Q2

REPORT INFORMATION
  Report Type: 
  Country: None (occurrence: None)
  Receive Date: 20100518
  Receipt Date: 20100512
  Transmission Date: 20101027
  Serious: Yes (Other)
  Sender: FDA-Public Use
  Company Number: B0653207A

PATIENT
  Sex: Male

DRUGS (8)
  1. AVODART [Suspect]
     Indication: BENIGN PROSTATIC HYPERPLASIA
     Dosage: .5MG PER DAY
     Route: 065
     Dates: start: 20071011, end: 20090109
  2. FURIX [Concomitant]
  3. GLUCOSAMINE [Concomitant]
     Dosage: 400MG THREE TIMES PER DAY
  4. KALEORID [Concomitant]
     Dosage: 750MG TWICE PER DAY
  5. METFORMIN HYDROCHLORIDE [Concomitant]
  6. SELO-ZOK [Concomitant]
     Dosage: 100MG PER DAY
  7. ALFUZOSIN HCL [Concomitant]
     Dosage: 10MG PER DAY
  8. SIMVASTATIN [Concomitant]
     Dosage: 20MG PER DAY

REACTIONS (4)
  - ALANINE AMINOTRANSFERASE INCREASED [None]
  - BLOOD ALKALINE PHOSPHATASE INCREASED [None]
  - BLOOD BILIRUBIN INCREASED [None]
  - HEPATIC ENZYME ABNORMAL [None]
